FAERS Safety Report 11791700 (Version 3)
Quarter: 2016Q1

REPORT INFORMATION
  Report Type: Report from Study
  Country: RO (occurrence: RO)
  Receive Date: 20151201
  Receipt Date: 20160304
  Transmission Date: 20160525
  Serious: Yes (Death, Hospitalization)
  Sender: FDA-Public Use
  Company Number: RO-ABBVIE-15P-135-1507103-00

PATIENT
  Age: 72 Year
  Sex: Female

DRUGS (5)
  1. LEPONEX [Concomitant]
     Active Substance: CLOZAPINE
     Indication: DEMENTIA
     Dosage: 1-1-2/DAY
     Route: 048
     Dates: start: 20130725, end: 20160301
  2. DUODOPA [Suspect]
     Active Substance: CARBIDOPA\LEVODOPA
     Indication: PARKINSON^S DISEASE
     Dosage: CR 4.5 ML, ED 3 ML/ 24 HOURS
     Route: 050
     Dates: start: 20130725, end: 20160301
  3. CIPRALEX [Concomitant]
     Active Substance: ESCITALOPRAM OXALATE
     Indication: AFFECTIVE DISORDER
     Dosage: 1-0-0/DAY
     Route: 048
     Dates: start: 20130725, end: 20160301
  4. GABAPENTIN. [Concomitant]
     Active Substance: GABAPENTIN
     Indication: POLYNEUROPATHY
     Route: 048
     Dates: start: 20130725, end: 20160301
  5. RIVASTIGMINE. [Concomitant]
     Active Substance: RIVASTIGMINE
     Indication: DEMENTIA
     Dosage: 2 X 4.5 MG/DAY
     Route: 048
     Dates: start: 20130725, end: 20160301

REACTIONS (4)
  - Cardio-respiratory arrest [Fatal]
  - Metastases to liver [Unknown]
  - Jaundice [Unknown]
  - Colon cancer [Unknown]

NARRATIVE: CASE EVENT DATE: 20160301
